FAERS Safety Report 19203679 (Version 3)
Quarter: 2021Q3

REPORT INFORMATION
  Report Type: Spontaneous
  Country: JP (occurrence: JP)
  Receive Date: 20210430
  Receipt Date: 20210806
  Transmission Date: 20211014
  Serious: Yes (Death, Other)
  Sender: FDA-Public Use
  Company Number: JP-SUNOVION-2021DSP006388

PATIENT
  Age: 46 Year
  Sex: Female
  Weight: 57.7 kg

DRUGS (28)
  1. AMOXAN [Suspect]
     Active Substance: AMOXAPINE
     Dosage: 50 MG, TID
     Route: 048
     Dates: start: 20200901, end: 20210310
  2. SULPIRIDE [Suspect]
     Active Substance: SULPIRIDE
     Dosage: 50 MG, QD
     Route: 048
     Dates: start: 20201212, end: 20201227
  3. BROMAZEPAM [Suspect]
     Active Substance: BROMAZEPAM
     Dosage: 2 MG, TID
     Route: 048
     Dates: start: 20210409, end: 20210417
  4. BROMAZEPAM [Suspect]
     Active Substance: BROMAZEPAM
     Dosage: 5 MG,10 TIMES / WEEK
     Route: 048
     Dates: start: 20210417, end: 20210417
  5. AMOXAN [Suspect]
     Active Substance: AMOXAPINE
     Dosage: 25 MG, TID
     Route: 048
     Dates: start: 20200704, end: 20200710
  6. BROMAZEPAM [Suspect]
     Active Substance: BROMAZEPAM
     Indication: DEPRESSION
     Dosage: 5 MG,10 TIMES / WEEK
     Route: 048
     Dates: start: 20210114, end: 20210123
  7. TRAZODONE HYDROCHLORIDE. [Concomitant]
     Active Substance: TRAZODONE HYDROCHLORIDE
     Dosage: 200 MG, QD
     Route: 048
     Dates: start: 20190719, end: 20200915
  8. TRAZODONE HYDROCHLORIDE. [Concomitant]
     Active Substance: TRAZODONE HYDROCHLORIDE
     Dosage: 100 MG, QD
     Route: 048
     Dates: start: 20200916, end: 20210321
  9. DAYVIGO [Concomitant]
     Active Substance: LEMBOREXANT
     Indication: INSOMNIA
     Dosage: 5 MG, QD
     Route: 048
     Dates: start: 20200905, end: 20201113
  10. DAYVIGO [Concomitant]
     Active Substance: LEMBOREXANT
     Dosage: 2.5 MG, QD
     Route: 048
     Dates: start: 20201212, end: 20210321
  11. LATUDA [Suspect]
     Active Substance: LURASIDONE HYDROCHLORIDE
     Dosage: 60 MG, QD
     Route: 048
     Dates: start: 20210322, end: 20210416
  12. AMOXAN [Suspect]
     Active Substance: AMOXAPINE
     Dosage: 20?50 MG, TID
     Route: 048
     Dates: start: 20200711, end: 20200831
  13. AMOXAN [Suspect]
     Active Substance: AMOXAPINE
     Dosage: 200 MG, QD
     Route: 048
     Dates: start: 20210311, end: 20210321
  14. CHLORPROMAZINE HYDROCHLORIDE. [Suspect]
     Active Substance: CHLORPROMAZINE HYDROCHLORIDE
     Dosage: 25 MG, QD
     Route: 048
     Dates: start: 20210409, end: 20210417
  15. LATUDA [Suspect]
     Active Substance: LURASIDONE HYDROCHLORIDE
     Indication: BIPOLAR DISORDER
     Dosage: 20 MG, QD
     Route: 048
     Dates: start: 20200905, end: 20201113
  16. AMOXAN [Suspect]
     Active Substance: AMOXAPINE
     Indication: BIPOLAR DISORDER
     Dosage: 25 MG, BID
     Route: 048
     Dates: start: 20200701, end: 20200703
  17. CHLORPROMAZINE HYDROCHLORIDE. [Suspect]
     Active Substance: CHLORPROMAZINE HYDROCHLORIDE
     Indication: SCHIZOPHRENIA
     Dosage: 50 MG, QD
     Route: 048
     Dates: start: 20210322, end: 20210403
  18. DAYVIGO [Concomitant]
     Active Substance: LEMBOREXANT
     Dosage: 10 MG, QD
     Route: 048
     Dates: start: 20201114, end: 20201211
  19. LATUDA [Suspect]
     Active Substance: LURASIDONE HYDROCHLORIDE
     Dosage: 40 MG, QD
     Route: 048
     Dates: start: 20201114, end: 20210321
  20. NORITREN [Suspect]
     Active Substance: NORTRIPTYLINE HYDROCHLORIDE
     Indication: DEPRESSION
     Dosage: 25 MG, TID
     Route: 048
     Dates: start: 20210322, end: 20210417
  21. ESZOPICLONE. [Suspect]
     Active Substance: ESZOPICLONE
     Indication: INSOMNIA
     Dosage: 3 MG, QD
     Route: 048
     Dates: start: 20190327, end: 20210421
  22. BROMAZEPAM [Suspect]
     Active Substance: BROMAZEPAM
     Dosage: 5 MG,10 TIMES / WEEK
     Route: 048
     Dates: start: 20210403, end: 20210409
  23. TRAZODONE HYDROCHLORIDE. [Concomitant]
     Active Substance: TRAZODONE HYDROCHLORIDE
     Indication: BIPOLAR DISORDER
     Dosage: 200 MG, QD
     Route: 048
     Dates: start: 20190327, end: 20190701
  24. TRAZODONE HYDROCHLORIDE. [Concomitant]
     Active Substance: TRAZODONE HYDROCHLORIDE
     Dosage: 150 MG, QD
     Route: 048
     Dates: start: 20190702, end: 20190718
  25. LATUDA [Suspect]
     Active Substance: LURASIDONE HYDROCHLORIDE
     Dosage: 40 MG, QD
     Route: 048
     Dates: start: 20210417, end: 20210421
  26. SULPIRIDE [Suspect]
     Active Substance: SULPIRIDE
     Dosage: 50 MG, TID
     Route: 048
     Dates: start: 20200711, end: 20201127
  27. SULPIRIDE [Suspect]
     Active Substance: SULPIRIDE
     Indication: BIPOLAR DISORDER
     Dosage: 50 MG, BID
     Route: 048
     Dates: start: 20200704, end: 20200710
  28. SULPIRIDE [Suspect]
     Active Substance: SULPIRIDE
     Dosage: 50 MG, BID
     Route: 048
     Dates: start: 20201128, end: 20201211

REACTIONS (3)
  - Obesity [Not Recovered/Not Resolved]
  - Intentional overdose [Unknown]
  - Completed suicide [Fatal]

NARRATIVE: CASE EVENT DATE: 20201212
